FAERS Safety Report 22320192 (Version 2)
Quarter: 2023Q2

REPORT INFORMATION
  Report Type: Spontaneous
  Country: HK (occurrence: HK)
  Receive Date: 20230515
  Receipt Date: 20230623
  Transmission Date: 20230722
  Serious: Yes (Hospitalization, Other)
  Sender: FDA-Public Use
  Company Number: HK-TRIS PHARMA, INC.-23HK010858

PATIENT

DRUGS (32)
  1. MORPHINE SULFATE [Suspect]
     Active Substance: MORPHINE SULFATE
     Indication: Dystonia
     Dosage: 3 MILLIGRAM, Q 6 HR
     Route: 048
  2. MORPHINE SULFATE [Suspect]
     Active Substance: MORPHINE SULFATE
     Indication: Dyskinesia
  3. MORPHINE SULFATE [Suspect]
     Active Substance: MORPHINE SULFATE
     Indication: Sedation
  4. NEXICLON XR [Suspect]
     Active Substance: CLONIDINE
     Indication: Dystonia
     Dosage: 0.58 MICROGRAM PER KILOGRAM, Q 8 HR
     Route: 048
  5. NEXICLON XR [Suspect]
     Active Substance: CLONIDINE
     Indication: Dyskinesia
     Dosage: 0.05 MICROGRAM, Q 6 HR
     Route: 048
  6. NEXICLON XR [Suspect]
     Active Substance: CLONIDINE
     Indication: Sedation
  7. MIDAZOLAM [Suspect]
     Active Substance: MIDAZOLAM
     Indication: Dystonia
     Dosage: 0.2 MILLIGRAM PER KILOGRAM
     Route: 042
  8. MIDAZOLAM [Suspect]
     Active Substance: MIDAZOLAM
     Indication: Dyskinesia
  9. MIDAZOLAM [Suspect]
     Active Substance: MIDAZOLAM
     Indication: Sedation
  10. MORPHINE [Suspect]
     Active Substance: MORPHINE
     Indication: Dystonia
     Dosage: 20 MICROGRAM PER KILOGRAM, EVERY HOUR
     Route: 042
  11. MORPHINE [Suspect]
     Active Substance: MORPHINE
     Indication: Dyskinesia
  12. MORPHINE [Suspect]
     Active Substance: MORPHINE
     Indication: Sedation
  13. CHLORAL HYDRATE [Suspect]
     Active Substance: CHLORAL HYDRATE
     Indication: Dystonia
     Dosage: 23 MILLIGRAM PER KILOGRAM, Q 6 HR
     Route: 048
  14. CHLORAL HYDRATE [Suspect]
     Active Substance: CHLORAL HYDRATE
     Indication: Dyskinesia
     Dosage: 500 MILLIGRAM, QD
     Route: 048
  15. CHLORAL HYDRATE [Suspect]
     Active Substance: CHLORAL HYDRATE
     Indication: Sedation
  16. DIAZEPAM [Suspect]
     Active Substance: DIAZEPAM
     Indication: Sedation
     Dosage: UNK
     Route: 048
  17. KETAMINE [Concomitant]
     Active Substance: KETAMINE
     Indication: Dystonia
     Dosage: 5 MICROGRAM PER KILOGRAM, PER MINUTE
     Route: 042
  18. KETAMINE [Concomitant]
     Active Substance: KETAMINE
     Indication: Dyskinesia
  19. KETAMINE [Concomitant]
     Active Substance: KETAMINE
     Indication: Sedation
  20. BACLOFEN [Concomitant]
     Active Substance: BACLOFEN
     Indication: Gene mutation
  21. BACLOFEN [Concomitant]
     Active Substance: BACLOFEN
     Indication: Movement disorder
  22. BACLOFEN [Concomitant]
     Active Substance: BACLOFEN
     Indication: Intellectual disability
  23. TETRABENAZINE [Concomitant]
     Active Substance: TETRABENAZINE
     Indication: Gene mutation
  24. TETRABENAZINE [Concomitant]
     Active Substance: TETRABENAZINE
     Indication: Movement disorder
  25. TETRABENAZINE [Concomitant]
     Active Substance: TETRABENAZINE
     Indication: Intellectual disability
  26. CARBAMAZEPINE [Concomitant]
     Active Substance: CARBAMAZEPINE
     Indication: Gene mutation
  27. CARBAMAZEPINE [Concomitant]
     Active Substance: CARBAMAZEPINE
     Indication: Movement disorder
  28. CARBAMAZEPINE [Concomitant]
     Active Substance: CARBAMAZEPINE
     Indication: Intellectual disability
  29. CLOBAZAM [Concomitant]
     Active Substance: CLOBAZAM
     Indication: Gene mutation
  30. CLOBAZAM [Concomitant]
     Active Substance: CLOBAZAM
     Indication: Movement disorder
  31. CLOBAZAM [Concomitant]
     Active Substance: CLOBAZAM
     Indication: Intellectual disability
  32. FUROSEMIDE [Concomitant]
     Active Substance: FUROSEMIDE
     Indication: Hypervolaemia
     Dosage: .2 MILLIGRAM PER KILOGRAM, EVERY HOUR

REACTIONS (10)
  - Respiratory failure [Recovered/Resolved]
  - Overdose [Unknown]
  - Metabolic acidosis [Recovered/Resolved]
  - Blood creatinine increased [Recovered/Resolved]
  - Hyperphosphataemia [Recovered/Resolved]
  - Hypercapnia [Recovered/Resolved]
  - Sedation complication [Recovered/Resolved]
  - Labelled drug-drug interaction issue [Unknown]
  - Tachycardia [Recovered/Resolved]
  - Miosis [Recovered/Resolved]
